FAERS Safety Report 17027139 (Version 1)
Quarter: 2019Q4

REPORT INFORMATION
  Report Type: Spontaneous
  Country: US (occurrence: US)
  Receive Date: 20191113
  Receipt Date: 20191113
  Transmission Date: 20200122
  Serious: No
  Sender: FDA-Public Use
  Company Number: US-GLAXOSMITHKLINE-US2019203745

PATIENT
  Sex: Female

DRUGS (1)
  1. NUCALA [Suspect]
     Active Substance: MEPOLIZUMAB
     Indication: PRODUCT USED FOR UNKNOWN INDICATION
     Dosage: UNK
     Route: 065
     Dates: start: 201801

REACTIONS (4)
  - Cough [Not Recovered/Not Resolved]
  - Upper respiratory tract infection [Unknown]
  - Sinusitis [Not Recovered/Not Resolved]
  - Dyspnoea [Not Recovered/Not Resolved]
